FAERS Safety Report 4613837-0 (Version None)
Quarter: 2005Q1

REPORT INFORMATION
  Report Type: 
  Country: None (occurrence: None)
  Receive Date: 20050315
  Receipt Date: 20050302
  Transmission Date: 20050727
  Serious: Yes (Hospitalization)
  Sender: FDA-Public Use
  Company Number: 2005CG00121

PATIENT
  Age: 63 Year
  Sex: Male
  Weight: 69 kg

DRUGS (4)
  1. CASODEX [Suspect]
     Indication: PROSTATE CANCER
     Dosage: 50 MG QD PO
     Route: 048
     Dates: start: 20040922, end: 20041115
  2. RADIOTHERAPY [Concomitant]
  3. ERYTHROMYCIN [Concomitant]
  4. DOLIPRANE [Concomitant]

REACTIONS (5)
  - CHOLESTASIS [None]
  - CYTOLYTIC HEPATITIS [None]
  - HEPATOCELLULAR DAMAGE [None]
  - PORTAL HYPERTENSION [None]
  - VASCULAR PURPURA [None]
